FAERS Safety Report 24105884 (Version 1)
Quarter: 2024Q3

REPORT INFORMATION
  Report Type: Report from Study
  Country: US (occurrence: US)
  Receive Date: 20240717
  Receipt Date: 20240717
  Transmission Date: 20241016
  Serious: Yes (Other)
  Sender: AMGEN
  Company Number: US-AMGEN-USASL2024129053

PATIENT
  Age: 48 Year
  Sex: Male

DRUGS (2)
  1. TEPEZZA [Suspect]
     Active Substance: TEPROTUMUMAB-TRBW
     Indication: Toxic goitre
     Dosage: UNK, 2 VIAL, Q3WK FIRST INFUSION AND ONLY INFUSION RECEIVED
     Route: 042
     Dates: start: 20240129
  2. TEPEZZA [Suspect]
     Active Substance: TEPROTUMUMAB-TRBW
     Dosage: UNK, 3 VIAL, Q3WK INFUSION 2-8
     Route: 042
     Dates: end: 20240627

REACTIONS (4)
  - Deafness unilateral [Unknown]
  - Blindness transient [Unknown]
  - Insomnia [Unknown]
  - Migraine [Unknown]

NARRATIVE: CASE EVENT DATE: 20240101
